FAERS Safety Report 8455952-X (Version None)
Quarter: 2012Q2

REPORT INFORMATION
  Report Type: 
  Country: None (occurrence: None)
  Receive Date: 20120621
  Receipt Date: 20120613
  Transmission Date: 20120825
  Serious: Yes (Hospitalization)
  Sender: FDA-Public Use
  Company Number: DE-UCBSA-052399

PATIENT

DRUGS (1)
  1. VIMPAT [Suspect]

REACTIONS (1)
  - RENAL FAILURE [None]
